FAERS Safety Report 8054831-X (Version None)
Quarter: 2012Q1

REPORT INFORMATION
  Report Type: 
  Country: None (occurrence: None)
  Receive Date: 20120119
  Receipt Date: 20120110
  Transmission Date: 20120608
  Serious: No
  Sender: FDA-Public Use
  Company Number: US-PFIZER INC-2011133306

PATIENT
  Sex: Female
  Weight: 104 kg

DRUGS (24)
  1. ALLEGRA [Concomitant]
     Dosage: UNK
  2. ADVAIR DISKUS 100/50 [Concomitant]
     Indication: ASTHMA
     Dosage: 250/50 UG, DAILY
  3. NEXIUM [Concomitant]
     Dosage: 40 MG, 2X/DAY
  4. GENOTROPIN [Suspect]
     Indication: GROWTH HORMONE DEFICIENCY
     Dosage: 0.02 MG, 1X/DAY
     Dates: start: 20110101, end: 20110615
  5. CALCIUM [Concomitant]
     Dosage: 1200 MG, DAILY
  6. VITAMIN D [Concomitant]
     Dosage: 1000 IU, WEEKLY
  7. LORAZEPAM [Concomitant]
     Dosage: 1 MG, UNK
  8. MONTELUKAST [Concomitant]
     Dosage: 10 MG, UNK
  9. MULTI-VITAMINS [Concomitant]
     Dosage: UNK
  10. VITAMIN B12-COMPLEX [Concomitant]
     Dosage: 1 ML, DAILY
  11. WELLBUTRIN [Concomitant]
     Indication: DEPRESSION
     Dosage: 75 MG, DAILY
  12. ALBUTEROL SULFATE [Concomitant]
     Indication: ASTHMA
     Dosage: 2.5 MG, UNK
  13. GENOTROPIN [Suspect]
     Dosage: 0.02 MG, 1X/DAY
  14. GENOTROPIN [Suspect]
     Indication: HYPOPITUITARISM
     Dosage: 0.02 MG, DAILY
     Route: 058
     Dates: start: 20100101, end: 20110101
  15. ALPRAZOLAM [Concomitant]
     Dosage: 1 MG, UNK
  16. HYDROCHLOROTHIAZIDE [Concomitant]
     Indication: HYPERTENSION
     Dosage: 25 MG, DAILY
  17. EVOXAC [Concomitant]
     Dosage: UNK, AS NEEDED
  18. MULTI-VITAMINS [Concomitant]
     Dosage: UNK
  19. CITALOPRAM [Concomitant]
     Dosage: 40 MG, UNK
  20. IBUPROFEN [Concomitant]
     Dosage: 7.5 MG, 3X/DAY
  21. ACETYLSALICYLIC ACID [Concomitant]
     Indication: PULMONARY EMBOLISM
     Dosage: 325 MG, 1X/DAY
  22. FUROSEMIDE [Concomitant]
     Indication: HYPERTENSION
     Dosage: 20 MG, DAILY
  23. NASONEX [Concomitant]
     Dosage: 50 MG, UNK
  24. POTASSIUM CHLORIDE [Concomitant]
     Dosage: 10 MEQ, DAILY

REACTIONS (7)
  - TREMOR [None]
  - CIRCUMSTANCE OR INFORMATION CAPABLE OF LEADING TO MEDICATION ERROR [None]
  - INJECTION SITE HAEMORRHAGE [None]
  - NAUSEA [None]
  - POOR QUALITY DRUG ADMINISTERED [None]
  - DISCOMFORT [None]
  - CHILLS [None]
